FAERS Safety Report 5626771-4 (Version None)
Quarter: 2008Q1

REPORT INFORMATION
  Report Type: 
  Country: None (occurrence: None)
  Receive Date: 20080212
  Receipt Date: 20080204
  Transmission Date: 20080703
  Serious: Yes (Other)
  Sender: FDA-Public Use
  Company Number: CHPA2008US02227

PATIENT
  Age: 43 Year
  Sex: Female

DRUGS (2)
  1. NUPERCAINAL HEMORRHOIDAL/ANES OINTMENT (NCH)(CINCHOCAINE) OINTMENT [Suspect]
     Indication: HAEMORRHOIDS
     Dosage: BID, TOPICAL
     Route: 061
     Dates: start: 20080103, end: 20080115
  2. HYDROCORTISONE [Suspect]
     Dates: start: 20080101

REACTIONS (1)
  - HYPOAESTHESIA [None]
